FAERS Safety Report 17827969 (Version 1)
Quarter: 2020Q2

REPORT INFORMATION
  Report Type: Spontaneous
  Country: US (occurrence: US)
  Receive Date: 20200527
  Receipt Date: 20200527
  Transmission Date: 20200714
  Serious: No
  Sender: FDA-Public Use
  Company Number: US-MYLANLABS-2020M1049640

PATIENT
  Sex: Female

DRUGS (2)
  1. PROPRANOLOL [Suspect]
     Active Substance: PROPRANOLOL HYDROCHLORIDE
     Indication: FAMILIAL TREMOR
     Dosage: 2 DOSAGE FORM, BID (2 IN AM AND 2 IN PM)
     Route: 048
     Dates: start: 1995
  2. RANITIDINE                         /00550802/ [Suspect]
     Active Substance: RANITIDINE
     Indication: GASTROOESOPHAGEAL REFLUX DISEASE
     Dosage: 300 MILLIGRAM, BID (TAKING IT FOR AT LEAST 10 YEARS )

REACTIONS (1)
  - Off label use [Unknown]
